FAERS Safety Report 7004846-5 (Version None)
Quarter: 2010Q3

REPORT INFORMATION
  Report Type: 
  Country: None (occurrence: None)
  Receive Date: 20100921
  Receipt Date: 20100910
  Transmission Date: 20110219
  Serious: Yes (Hospitalization)
  Sender: FDA-Public Use
  Company Number: CA-NOVOPROD-314642

PATIENT
  Sex: Female

DRUGS (2)
  1. VAGIFEM [Suspect]
     Indication: ATROPHIC VULVOVAGINITIS
     Dosage: 1 TABLET TWICE WEEKLY
     Dates: start: 20100101, end: 20100902
  2. COMBIPATCH [Concomitant]
     Dosage: 50/140 TWICE WEEKLY
     Dates: start: 19900101

REACTIONS (1)
  - CEREBROVASCULAR ACCIDENT [None]
